FAERS Safety Report 11053058 (Version 2)
Quarter: 2015Q2

REPORT INFORMATION
  Report Type: Spontaneous
  Country: US (occurrence: US)
  Receive Date: 20150421
  Receipt Date: 20150525
  Transmission Date: 20150821
  Serious: No
  Sender: FDA-Public Use
  Company Number: US-JNJFOC-20130705621

PATIENT
  Sex: Female
  Weight: 49.9 kg

DRUGS (1)
  1. RISPERDAL CONSTA [Suspect]
     Active Substance: RISPERIDONE
     Indication: APHASIA
     Route: 030
     Dates: start: 2013, end: 2013

REACTIONS (4)
  - Chest pain [Recovered/Resolved]
  - Akathisia [Not Recovered/Not Resolved]
  - Dyspnoea [Recovered/Resolved]
  - Drug administration error [Recovered/Resolved]

NARRATIVE: CASE EVENT DATE: 2013
